FAERS Safety Report 16362142 (Version 1)
Quarter: 2019Q3

REPORT INFORMATION
  Report Type: Spontaneous
  Country: CA (occurrence: CA)
  Receive Date: 20190525
  Receipt Date: 20190525
  Transmission Date: 20191004
  Serious: Yes (Other)
  Sender: FDA-Public Use
  Company Number: None

PATIENT
  Age: 20 Year
  Sex: Female
  Weight: 46.35 kg

DRUGS (4)
  1. EPIDUO FORTE [Suspect]
     Active Substance: ADAPALENE\BENZOYL PEROXIDE
     Indication: ACNE
     Route: 061
     Dates: start: 20180903, end: 20190211
  2. MULTIVITAMIN [Concomitant]
     Active Substance: VITAMINS
  3. IRON SUPPLEMENT [Concomitant]
     Active Substance: IRON
  4. PROBIOTIC PILLS [Concomitant]

REACTIONS (3)
  - Dermatitis [None]
  - Rash [None]
  - Eczema [None]

NARRATIVE: CASE EVENT DATE: 20190211
